FAERS Safety Report 17984923 (Version 3)
Quarter: 2020Q3

REPORT INFORMATION
  Report Type: Spontaneous
  Country: CN (occurrence: CN)
  Receive Date: 20200706
  Receipt Date: 20200804
  Transmission Date: 20201103
  Serious: Yes (Other)
  Sender: FDA-Public Use
  Company Number: CN-ALLERGAN-2025456US

PATIENT
  Sex: Female

DRUGS (1)
  1. OZURDEX [Suspect]
     Active Substance: DEXAMETHASONE
     Indication: RETINAL VEIN OCCLUSION
     Dosage: 0.7 MG, SINGLE
     Route: 031

REACTIONS (5)
  - Vitreous floaters [Recovered/Resolved]
  - Necrotising retinitis [Recovered/Resolved]
  - Visual acuity reduced [Recovered/Resolved]
  - Photophobia [Recovered/Resolved]
  - Ocular hyperaemia [Recovered/Resolved]
